FAERS Safety Report 4480612-X (Version None)
Quarter: 2004Q4

REPORT INFORMATION
  Report Type: 
  Country: None (occurrence: None)
  Receive Date: 20041019
  Receipt Date: 20041006
  Transmission Date: 20050328
  Serious: Yes (Other)
  Sender: FDA-Public Use
  Company Number: 2004075546

PATIENT
  Age: 75 Year
  Sex: Female

DRUGS (11)
  1. DILANTIN [Suspect]
     Indication: CONVULSION
     Dosage: 600 MG (300 MG, 2 IN 1 D)
     Dates: start: 20040101, end: 20040101
  2. DONEPEZIL HCL [Suspect]
     Indication: AMNESIA
     Dosage: 10 MG (10 MG, 1 IN 1 D), ORAL
     Route: 048
     Dates: start: 20040101
  3. OXCARBAZEPINE (OXCARBAZEPINE) [Suspect]
     Indication: CONVULSION
     Dates: start: 20040101, end: 20040101
  4. LEVOTHYROXINE SODIUM [Concomitant]
  5. PANTOPRAZOLE (PANTOPRAZOLE) [Concomitant]
  6. CELECOXIB (CELECOXIB) [Concomitant]
  7. SIMVASTATIN [Concomitant]
  8. WARFARIN SODIUM [Concomitant]
  9. VALSARTAN (VALSARTAN) [Concomitant]
  10. METOPROLOL TARTRATE [Concomitant]
  11. VITAMIN B (VITAMIN B) [Concomitant]

REACTIONS (4)
  - AMNESIA [None]
  - CONDITION AGGRAVATED [None]
  - CONVULSION [None]
  - RASH [None]
